FAERS Safety Report 4896269-X (Version None)
Quarter: 2006Q1

REPORT INFORMATION
  Report Type: 
  Country: None (occurrence: None)
  Receive Date: 20060131
  Receipt Date: 20060123
  Transmission Date: 20060701
  Serious: Yes (Life-Threatening)
  Sender: FDA-Public Use
  Company Number: 2006AC00172

PATIENT
  Age: 41 Year
  Sex: Female

DRUGS (4)
  1. LIDOCAINE [Suspect]
     Indication: LOCAL ANAESTHESIA
     Dosage: LIDOCAINE WITH ADRENALINE 1:200000
     Route: 008
  2. BUPIVACAINE [Suspect]
     Indication: GENERAL ANAESTHESIA
     Dosage: INITIAL BOLUS.
     Route: 008
  3. BUPIVACAINE [Suspect]
     Dosage: CONTINUOUS INFUSION.
     Route: 008
  4. FENTANYL [Suspect]
     Indication: GENERAL ANAESTHESIA
     Dosage: CONTINUOUS INFUSION.
     Route: 008

REACTIONS (4)
  - CENTRAL VENOUS PRESSURE INCREASED [None]
  - HYPOTENSION [None]
  - PROCEDURAL COMPLICATION [None]
  - PROCEDURAL HYPOTENSION [None]
